FAERS Safety Report 23361373 (Version 3)
Quarter: 2024Q1

REPORT INFORMATION
  Report Type: Spontaneous
  Country: JP (occurrence: JP)
  Receive Date: 20240103
  Receipt Date: 20240321
  Transmission Date: 20240410
  Serious: Yes (Hospitalization, Other)
  Sender: FDA-Public Use
  Company Number: JP-OTSUKA-2023_033786

PATIENT
  Age: 30 Year
  Sex: Male

DRUGS (1)
  1. SAMSCA [Suspect]
     Active Substance: TOLVAPTAN
     Indication: Congenital cystic kidney disease
     Dosage: 60/DAY
     Route: 048
     Dates: start: 20231213, end: 20231217

REACTIONS (4)
  - Haemorrhagic cyst [Not Recovered/Not Resolved]
  - Acute kidney injury [Unknown]
  - Haematuria [Unknown]
  - Pyrexia [Unknown]

NARRATIVE: CASE EVENT DATE: 20231217
